FAERS Safety Report 4894200-4 (Version None)
Quarter: 2006Q1

REPORT INFORMATION
  Report Type: 
  Country: None (occurrence: None)
  Receive Date: 20060127
  Receipt Date: 20051007
  Transmission Date: 20060701
  Serious: No
  Sender: FDA-Public Use
  Company Number: 2005/03797

PATIENT
  Age: 47 Year
  Sex: Female

DRUGS (10)
  1. BUPROPION [Suspect]
     Indication: PANIC DISORDER
     Dosage: 150MG TWICE PER DAY
     Route: 048
  2. SYNTHROID [Concomitant]
     Indication: HYPOTHYROIDISM
     Route: 065
  3. CITALOPRAM HYDROBROMIDE [Concomitant]
     Indication: DEPRESSION
     Route: 065
  4. M.V.I. [Concomitant]
     Route: 065
  5. MAGNESIUM [Concomitant]
     Indication: MIGRAINE
     Route: 065
  6. GLUCOSAMINE [Concomitant]
     Route: 065
  7. BLACK COHOSH [Concomitant]
     Indication: MENOPAUSE
     Route: 065
  8. VITAMIN B COMPLEX CAP [Concomitant]
     Route: 065
  9. PRIMROSE OIL [Concomitant]
     Route: 065
  10. VITAMINE E [Concomitant]
     Route: 065

REACTIONS (1)
  - ABDOMINAL PAIN [None]
